FAERS Safety Report 24671225 (Version 1)
Quarter: 2024Q4

REPORT INFORMATION
  Report Type: Spontaneous
  Country: US (occurrence: None)
  Receive Date: 20241127
  Receipt Date: 20241127
  Transmission Date: 20250115
  Serious: Yes (Other)
  Sender: Public
  Company Number: None

PATIENT
  Age: 62 Year
  Sex: Female
  Weight: 86.4 kg

DRUGS (1)
  1. ANASTROZOLE [Suspect]
     Active Substance: ANASTROZOLE
     Indication: Breast cancer
     Dosage: FREQUENCY : DAILY;?
     Route: 048
     Dates: start: 20241111, end: 20241121

REACTIONS (5)
  - Muscle spasms [None]
  - Paraesthesia [None]
  - Myalgia [None]
  - Anxiety [None]
  - Panic disorder [None]

NARRATIVE: CASE EVENT DATE: 20241121
